FAERS Safety Report 10842188 (Version 2)
Quarter: 2015Q2

REPORT INFORMATION
  Report Type: Report from Study
  Country: CA (occurrence: CA)
  Receive Date: 20150220
  Receipt Date: 20150415
  Transmission Date: 20150821
  Serious: Yes (Other)
  Sender: FDA-Public Use
  Company Number: CA-AMGEN-CANSL2015015504

PATIENT
  Age: 71 Year
  Sex: Female

DRUGS (4)
  1. MVI                                /01825701/ [Concomitant]
     Dosage: UNK
  2. CALCIUM [Concomitant]
     Active Substance: CALCIUM
     Dosage: UNK
  3. PROLIA [Suspect]
     Active Substance: DENOSUMAB
     Indication: ARTHRITIS
     Dosage: 60 MG, Q6MO
     Route: 058
     Dates: start: 20140306
  4. MAGNESIUM [Concomitant]
     Active Substance: MAGNESIUM
     Dosage: UNK

REACTIONS (6)
  - Hyperhidrosis [Unknown]
  - Presyncope [Unknown]
  - Myalgia [Unknown]
  - Hot flush [Recovering/Resolving]
  - Joint stiffness [Unknown]
  - Feeling abnormal [Unknown]

NARRATIVE: CASE EVENT DATE: 2014
